FAERS Safety Report 9879850 (Version 2)
Quarter: 2014Q2

REPORT INFORMATION
  Report Type: Spontaneous
  Country: US (occurrence: US)
  Receive Date: 20140206
  Receipt Date: 20140616
  Transmission Date: 20141212
  Serious: Yes (Hospitalization, Disabling, Other)
  Sender: FDA-Public Use
  Company Number: US-009507513-1402USA002048

PATIENT
  Sex: Female

DRUGS (1)
  1. NUVARING [Suspect]
     Indication: PRODUCT USED FOR UNKNOWN INDICATION
     Dosage: IN PLACE FOR 3 WEEKS AT A TIME
     Route: 067
     Dates: start: 200503, end: 20081228

REACTIONS (17)
  - Pulmonary embolism [Unknown]
  - Nausea [Unknown]
  - Headache [Unknown]
  - Asthma [Unknown]
  - Fibromyalgia [Unknown]
  - Pneumonia [Unknown]
  - Muscle spasms [Unknown]
  - Deep vein thrombosis [Unknown]
  - Vena cava filter insertion [Unknown]
  - Retroperitoneal haemorrhage [Unknown]
  - Explorative laparotomy [Unknown]
  - Vena cava filter removal [Unknown]
  - Haemothorax [Unknown]
  - Thoracic operation [Unknown]
  - Pleural decortication [Unknown]
  - Acute respiratory distress syndrome [Unknown]
  - Systemic candida [Unknown]
